FAERS Safety Report 5558273-8 (Version None)
Quarter: 2007Q4

REPORT INFORMATION
  Report Type: 
  Country: None (occurrence: None)
  Receive Date: 20071214
  Receipt Date: 20071204
  Transmission Date: 20080405
  Serious: Yes (Other)
  Sender: FDA-Public Use
  Company Number: TH-PFIZER INC-2007099014

PATIENT
  Age: 60 Year
  Sex: Male

DRUGS (6)
  1. SULPERAZONE [Suspect]
     Indication: PNEUMONIA
     Route: 042
  2. METRONIDAZOLE HCL [Suspect]
     Route: 042
  3. CONTROLOC [Suspect]
     Route: 042
  4. CISPLATIN [Concomitant]
     Route: 042
  5. FLUOROURACIL [Concomitant]
     Route: 042
  6. THERAPEUTIC RADIOPHARMACEUTICALS [Concomitant]

REACTIONS (1)
  - PLATELET COUNT DECREASED [None]
